FAERS Safety Report 20616205 (Version 1)
Quarter: 2022Q1

REPORT INFORMATION
  Report Type: Spontaneous
  Country: US (occurrence: None)
  Receive Date: 20220319
  Receipt Date: 20220319
  Transmission Date: 20220423
  Serious: Yes (Hospitalization)
  Sender: FDA-Public Use
  Company Number: None

PATIENT
  Age: 77 Year
  Sex: Male
  Weight: 94.8 kg

DRUGS (16)
  1. DEFERASIROX [Suspect]
     Active Substance: DEFERASIROX
     Indication: Anaemia folate deficiency
     Dosage: FREQUENCY : EVERY 12 HOURS;?
     Route: 048
  2. COENZYME Q10 [Concomitant]
     Active Substance: DIETARY SUPPLEMENT\UBIDECARENONE
  3. DACOGEN [Concomitant]
     Active Substance: DECITABINE
  4. FLAXSEED [Concomitant]
     Active Substance: FLAX SEED
  5. FUROSEMIDE [Concomitant]
     Active Substance: FUROSEMIDE
  6. LEVOFLOXACIN [Concomitant]
     Active Substance: LEVOFLOXACIN
  7. METFORMIN [Concomitant]
     Active Substance: METFORMIN HYDROCHLORIDE
  8. MIDODRINE [Concomitant]
     Active Substance: MIDODRINE
  9. MIRTAZAPINE [Concomitant]
     Active Substance: MIRTAZAPINE
  10. ONDANSETRON [Concomitant]
     Active Substance: ONDANSETRON
  11. POSACONAZOLE [Concomitant]
     Active Substance: POSACONAZOLE
  12. REBLOZYL [Concomitant]
     Active Substance: LUSPATERCEPT-AAMT
  13. VALACYCLOVIR [Concomitant]
     Active Substance: VALACYCLOVIR HYDROCHLORIDE
  14. VENCLEXTA [Concomitant]
     Active Substance: VENETOCLAX
  15. VITAMIN B COMPLEX [Concomitant]
     Active Substance: CYANOCOBALAMIN\DEXPANTHENOL\NIACINAMIDE\PYRIDOXINE HYDROCHLORIDE\RIBOFLAVIN 5^-PHOSPHATE SODIUM\THIA
  16. VITAMIN C [Concomitant]
     Active Substance: ASCORBIC ACID

REACTIONS (2)
  - White blood cell count decreased [None]
  - Therapy interrupted [None]

NARRATIVE: CASE EVENT DATE: 20220302
